FAERS Safety Report 9174214 (Version 2)
Quarter: 2013Q1

REPORT INFORMATION
  Report Type: Spontaneous
  Country: US (occurrence: US)
  Receive Date: 20130320
  Receipt Date: 20130320
  Transmission Date: 20140127
  Serious: No
  Sender: FDA-Public Use
  Company Number: US-MYLANLABS-2012S1020884

PATIENT
  Age: 71 Year
  Sex: Female

DRUGS (3)
  1. SOTALOL HYDROCHLORIDE TABLETS (AF) [Suspect]
     Indication: ATRIAL FIBRILLATION
     Dates: start: 2010
  2. SOTALOL HYDROCHLORIDE TABLETS (AF) [Suspect]
     Indication: ARRHYTHMIA
     Dates: start: 2010
  3. COUMADIN [Concomitant]

REACTIONS (2)
  - Creatinine urine increased [Not Recovered/Not Resolved]
  - Urine albumin/creatinine ratio increased [Not Recovered/Not Resolved]
